FAERS Safety Report 14172057 (Version 2)
Quarter: 2017Q4

REPORT INFORMATION
  Report Type: Report from Study
  Country: None (occurrence: RO)
  Receive Date: 20171108
  Receipt Date: 20171219
  Transmission Date: 20180321
  Serious: Yes (Hospitalization, Disabling)
  Sender: FDA-Public Use
  Company Number: RO-ABBVIE-17K-135-2150936-00

PATIENT
  Age: 50 Year
  Sex: Female

DRUGS (3)
  1. HUMIRA [Suspect]
     Active Substance: ADALIMUMAB
     Indication: ANKYLOSING SPONDYLITIS
     Route: 058
     Dates: start: 20161018, end: 20171018
  2. URSOFALK [Concomitant]
     Active Substance: URSODIOL
     Indication: CHOLESTASIS
  3. ARCOXIA [Concomitant]
     Active Substance: ETORICOXIB
     Indication: ANKYLOSING SPONDYLITIS
     Dates: start: 20160113

REACTIONS (3)
  - Uveitis [Not Recovered/Not Resolved]
  - Uveitis [Recovered/Resolved]
  - Iridocyclitis [Recovering/Resolving]

NARRATIVE: CASE EVENT DATE: 20170824
